FAERS Safety Report 9225426 (Version 1)
Quarter: 2013Q2

REPORT INFORMATION
  Report Type: Report from Study
  Country: US (occurrence: US)
  Receive Date: 20130411
  Receipt Date: 20130411
  Transmission Date: 20140414
  Serious: Yes (Other)
  Sender: FDA-Public Use
  Company Number: US-BAXTER-2013BAX013759

PATIENT
  Sex: 0

DRUGS (3)
  1. CYTOXAN (CYCLOPHOSPHAMIDE FOR INJECTION, USP) 2 GRAM VIAL (LYOPHILIZE [Suspect]
     Indication: B-CELL LYMPHOMA
  2. ETOPOSIDE [Suspect]
     Indication: B-CELL LYMPHOMA
  3. TOSITUMOMAB-IODINE 131 [Suspect]
     Indication: B-CELL LYMPHOMA

REACTIONS (3)
  - Second primary malignancy [Unknown]
  - Acute myeloid leukaemia [Unknown]
  - Myelodysplastic syndrome [Unknown]
